FAERS Safety Report 6236440-8 (Version None)
Quarter: 2009Q2

REPORT INFORMATION
  Report Type: 
  Country: None (occurrence: None)
  Receive Date: 20090619
  Receipt Date: 20090605
  Transmission Date: 20091009
  Serious: Yes (Life-Threatening, Other)
  Sender: FDA-Public Use
  Company Number: JP-PFIZER INC-2009223140

PATIENT
  Age: 59 Year

DRUGS (8)
  1. SULPERAZON [Suspect]
     Indication: PNEUMONIA
     Dosage: 1 G, 2X/DAY
     Route: 042
     Dates: start: 20090602, end: 20090602
  2. SULPERAZON [Suspect]
     Indication: PERITONITIS
  3. LACTEC [Suspect]
     Dosage: UNK
     Route: 042
     Dates: start: 20090601
  4. ALL OTHER THERAPEUTIC PRODUCTS [Suspect]
     Dosage: UNK
     Route: 042
     Dates: start: 20090601
  5. GASTER [Suspect]
     Dosage: UNK
     Route: 042
     Dates: start: 20090601
  6. REMINARON [Suspect]
     Dosage: UNK
     Route: 042
     Dates: start: 20090601
  7. PRIMPERAN [Suspect]
     Dosage: UNK
     Route: 042
     Dates: start: 20090601
  8. SOSEGON [Suspect]
     Dosage: UNK
     Route: 042
     Dates: start: 20090601

REACTIONS (2)
  - ANAPHYLACTIC SHOCK [None]
  - DISSEMINATED INTRAVASCULAR COAGULATION [None]
